FAERS Safety Report 9851052 (Version 2)
Quarter: 2014Q1

REPORT INFORMATION
  Report Type: Spontaneous
  Country: US (occurrence: US)
  Receive Date: 20140128
  Receipt Date: 20140128
  Transmission Date: 20141002
  Serious: No
  Sender: FDA-Public Use
  Company Number: US-DYAX CORP.-2012DX000188

PATIENT
  Age: 43 Year
  Sex: Female
  Weight: 60.38 kg

DRUGS (13)
  1. KALBITOR [Suspect]
     Indication: HEREDITARY ANGIOEDEMA
     Route: 058
     Dates: start: 20120821, end: 20120821
  2. KALBITOR [Suspect]
     Route: 058
     Dates: start: 20120819, end: 20120819
  3. KALBITOR [Suspect]
     Route: 058
     Dates: start: 20120320
  4. AMITIZA [Concomitant]
     Indication: CONSTIPATION
     Dates: start: 20111001
  5. HYDROXIZINE [Concomitant]
     Indication: ANXIETY
     Route: 065
     Dates: start: 201201
  6. NORCO [Concomitant]
     Indication: GASTROINTESTINAL PAIN
     Route: 065
     Dates: start: 20110501
  7. TRAMADOL [Concomitant]
     Indication: PAIN
     Route: 065
     Dates: start: 20120501
  8. XANAX [Concomitant]
     Indication: ANXIETY
     Route: 065
     Dates: start: 1990
  9. ZOFRAN [Concomitant]
     Indication: NAUSEA
     Route: 065
     Dates: start: 20110501
  10. CINRYZE [Concomitant]
     Indication: HEREDITARY ANGIOEDEMA
     Route: 042
     Dates: start: 20120821, end: 20120821
  11. CINRYZE [Concomitant]
     Route: 042
     Dates: start: 20120823, end: 20120823
  12. CINRYZE [Concomitant]
     Route: 042
     Dates: start: 20120823, end: 20120823
  13. CINRYZE [Concomitant]
     Route: 042
     Dates: start: 20110501

REACTIONS (9)
  - Heart rate increased [Recovered/Resolved]
  - Tremor [Recovered/Resolved]
  - Chills [Unknown]
  - Feeling abnormal [Recovered/Resolved]
  - Blood pressure fluctuation [Recovered/Resolved]
  - Systemic lupus erythematosus [Unknown]
  - Fatigue [Unknown]
  - Therapeutic response decreased [Unknown]
  - Hereditary angioedema [Recovered/Resolved]
